FAERS Safety Report 20588743 (Version 2)
Quarter: 2022Q2

REPORT INFORMATION
  Report Type: Report from Study
  Country: US (occurrence: US)
  Receive Date: 20220314
  Receipt Date: 20220411
  Transmission Date: 20220721
  Serious: No
  Sender: FDA-Public Use
  Company Number: US-NOVARTISTESTPH-NVSC2022US058173

PATIENT
  Sex: Female

DRUGS (2)
  1. ENTRESTO [Suspect]
     Active Substance: SACUBITRIL\VALSARTAN
     Indication: Chronic left ventricular failure
     Dosage: 0.5 DOSAGE FORM, BID
     Route: 065
     Dates: start: 202107
  2. ZOCOR [Suspect]
     Active Substance: SIMVASTATIN
     Indication: Product used for unknown indication
     Dosage: UNK
     Route: 065

REACTIONS (3)
  - Wrong technique in product usage process [Unknown]
  - Prescribed underdose [Unknown]
  - Hypersensitivity [Unknown]
